FAERS Safety Report 14271417 (Version 4)
Quarter: 2021Q4

REPORT INFORMATION
  Report Type: Report from Study
  Country: HU (occurrence: HU)
  Receive Date: 20171211
  Receipt Date: 20211001
  Transmission Date: 20220303
  Serious: Yes (Other)
  Sender: FDA-Public Use
  Company Number: HU-ROCHE-2036022

PATIENT
  Age: 77 Year
  Sex: Male
  Weight: 76 kg

DRUGS (19)
  1. ATEZOLIZUMAB [Suspect]
     Active Substance: ATEZOLIZUMAB
     Indication: Malignant melanoma
     Dosage: DATE OF MOST RECENT DOSE PRIOR TO SAE ONSET: 21/NOV/2017, 1200MG?FREQUENCY AS PER PROTOCOL: ON DAY 1
     Route: 042
     Dates: start: 20170620
  2. VEMURAFENIB [Suspect]
     Active Substance: VEMURAFENIB
     Indication: Malignant melanoma
     Dosage: DATE OF MOST RECENT DOSE (TOTAL NUMBER OF TABLETS: 3) PRIOR TO SAE ONSET: 03/DEC/2017.?FREQUENCY AS
     Route: 048
     Dates: start: 20170523
  3. COBIMETINIB [Suspect]
     Active Substance: COBIMETINIB
     Indication: Malignant melanoma
     Dosage: DATE OF MOST RECENT DOSE (40 MG) PRIOR TO SAE ONSET: 03/DEC/2017.?FREQUENCY AS PER PROTOCOL: ON DAY
     Route: 048
     Dates: start: 20170523
  4. DOXAZOSIN [Concomitant]
     Active Substance: DOXAZOSIN MESYLATE
     Indication: Hypertension
  5. ROSUVASTATIN [Concomitant]
     Active Substance: ROSUVASTATIN
     Indication: Hypercholesterolaemia
  6. LOSARTAN [Concomitant]
     Active Substance: LOSARTAN
     Indication: Hypertension
     Dates: end: 20171218
  7. HYDROCHLOROTHIAZIDE [Concomitant]
     Active Substance: HYDROCHLOROTHIAZIDE
     Indication: Hypertension
  8. PREDNISOLONE [Concomitant]
     Active Substance: PREDNISOLONE
     Indication: Inflammation
     Route: 048
     Dates: start: 20170706
  9. POTASSIUM CHLORIDE [Concomitant]
     Active Substance: POTASSIUM CHLORIDE
     Dates: start: 20170706
  10. PANTOPRAZOLE SODIUM [Concomitant]
     Active Substance: PANTOPRAZOLE SODIUM
     Indication: Peptic ulcer
     Dates: start: 20170706
  11. METHYLPREDNISOLONE ACEPONATE [Concomitant]
     Active Substance: METHYLPREDNISOLONE ACEPONATE
     Indication: Dermatitis acneiform
     Route: 061
     Dates: start: 20170614
  12. RAMIPRIL [Concomitant]
     Active Substance: RAMIPRIL
     Indication: Hypertension
     Dates: start: 20171218
  13. SULFAMETHOXAZOLE\TRIMETHOPRIM [Concomitant]
     Active Substance: SULFAMETHOXAZOLE\TRIMETHOPRIM
     Dates: start: 201712, end: 201712
  14. BETADINE (HUNGARY) [Concomitant]
     Dates: start: 20171222
  15. AMOXICILLIN\CLAVULANIC ACID [Concomitant]
     Active Substance: AMOXICILLIN\CLAVULANIC ACID
     Indication: Erysipelas
     Dates: start: 20171229, end: 20180103
  16. DIOSMIN\HESPERIDIN [Concomitant]
     Active Substance: DIOSMIN\HESPERIDIN
     Indication: Erysipelas
     Dates: start: 20171229
  17. DERMAZIN [Concomitant]
     Indication: Erysipelas
     Dates: start: 20171229, end: 20180103
  18. TRITACE HCT [Concomitant]
     Indication: Syncope
     Route: 048
     Dates: start: 20171218
  19. RAMIPRIL [Concomitant]
     Active Substance: RAMIPRIL
     Indication: Syncope
     Route: 048
     Dates: start: 20171218

REACTIONS (1)
  - Lipase increased [Recovered/Resolved]

NARRATIVE: CASE EVENT DATE: 20171204
